FAERS Safety Report 18593360 (Version 1)
Quarter: 2020Q4

REPORT INFORMATION
  Report Type: Spontaneous
  Country: US (occurrence: US)
  Receive Date: 20201209
  Receipt Date: 20201209
  Transmission Date: 20210114
  Serious: No
  Sender: FDA-Public Use
  Company Number: US-009507513-2012USA002306

PATIENT
  Age: 24 Year
  Sex: Female
  Weight: 117.46 kg

DRUGS (1)
  1. NEXPLANON [Suspect]
     Active Substance: ETONOGESTREL
     Dosage: 1 DOSAGE FORM (IMPLANT)
     Route: 059
     Dates: start: 20200709, end: 20201203

REACTIONS (3)
  - Pain in extremity [Unknown]
  - Device kink [Recovered/Resolved]
  - Device breakage [Recovered/Resolved]

NARRATIVE: CASE EVENT DATE: 20201203
